FAERS Safety Report 7007023-7 (Version None)
Quarter: 2010Q3

REPORT INFORMATION
  Report Type: 
  Country: None (occurrence: None)
  Receive Date: 20100922
  Receipt Date: 20100914
  Transmission Date: 20110219
  Serious: Yes (Other)
  Sender: FDA-Public Use
  Company Number: GB-TEVA-248845ISR

PATIENT
  Age: 90 Year
  Sex: Female
  Weight: 51 kg

DRUGS (1)
  1. TRAMADOL [Suspect]
     Indication: PELVIC FRACTURE
     Route: 048
     Dates: start: 20090505

REACTIONS (2)
  - MYOCLONUS [None]
  - WITHDRAWAL SYNDROME [None]
